FAERS Safety Report 17400314 (Version 2)
Quarter: 2020Q1

REPORT INFORMATION
  Report Type: Spontaneous
  Country: US (occurrence: US)
  Receive Date: 20200211
  Receipt Date: 20200309
  Transmission Date: 20200409
  Serious: Yes (Other)
  Sender: FDA-Public Use
  Company Number: US-BEH-2020112658

PATIENT
  Age: 52 Year
  Sex: Male

DRUGS (2)
  1. HIZENTRA [Suspect]
     Active Substance: HUMAN IMMUNOGLOBULIN G
     Indication: IMMUNODEFICIENCY COMMON VARIABLE
     Dosage: 11 GRAM, QW
     Route: 058
     Dates: start: 20190925
  2. HIZENTRA [Suspect]
     Active Substance: HUMAN IMMUNOGLOBULIN G
     Dosage: 11 GRAM, QW
     Route: 058
     Dates: start: 20180924

REACTIONS (8)
  - Peripheral swelling [Unknown]
  - No adverse event [Unknown]
  - Burning mouth syndrome [Unknown]
  - Deep vein thrombosis [Unknown]
  - Cyst [Unknown]
  - Depressed mood [Unknown]
  - Influenza [Unknown]
  - Product use complaint [Unknown]

NARRATIVE: CASE EVENT DATE: 201912
